FAERS Safety Report 21093703 (Version 3)
Quarter: 2023Q2

REPORT INFORMATION
  Report Type: Report from Study
  Country: BR (occurrence: BR)
  Receive Date: 20220718
  Receipt Date: 20230627
  Transmission Date: 20230722
  Serious: Yes (Other)
  Sender: FDA-Public Use
  Company Number: BR-NOVARTISPH-NVSC2022BR161826

PATIENT
  Sex: Female

DRUGS (3)
  1. KISQALI [Suspect]
     Active Substance: RIBOCICLIB
     Indication: Product used for unknown indication
     Dosage: UNK
     Route: 065
     Dates: start: 20220515
  2. KISQALI [Suspect]
     Active Substance: RIBOCICLIB
     Dosage: UNK (ABOUT 2 MONTHS AGO)
     Route: 065
  3. KISQALI [Suspect]
     Active Substance: RIBOCICLIB
     Dosage: 3 DOSAGE FORM (EVERY DAY)
     Route: 065

REACTIONS (11)
  - Femur fracture [Unknown]
  - Feeding disorder [Recovered/Resolved]
  - Weight decreased [Recovered/Resolved]
  - Diarrhoea [Recovered/Resolved]
  - Nausea [Recovered/Resolved]
  - Vomiting [Recovered/Resolved]
  - Gait disturbance [Unknown]
  - Skin disorder [Recovering/Resolving]
  - Pain in extremity [Recovering/Resolving]
  - Osteoporosis [Unknown]
  - Musculoskeletal stiffness [Recovering/Resolving]
